FAERS Safety Report 7772709-3 (Version None)
Quarter: 2011Q3

REPORT INFORMATION
  Report Type: 
  Country: None (occurrence: None)
  Receive Date: 20110922
  Receipt Date: 20100303
  Transmission Date: 20111222
  Serious: No
  Sender: FDA-Public Use
  Company Number: US-ASTRAZENECA-2009SE28112

PATIENT
  Sex: Female
  Weight: 129 kg

DRUGS (3)
  1. SEROQUEL [Suspect]
     Dosage: 25 MG TO 600 MG
     Route: 048
     Dates: start: 20010312
  2. EFFEXOR XR [Concomitant]
     Dates: start: 20010222
  3. NEURONTIN [Concomitant]
     Dates: start: 20010222

REACTIONS (2)
  - TYPE 2 DIABETES MELLITUS [None]
  - METABOLIC SYNDROME [None]
